FAERS Safety Report 7297737-6 (Version None)
Quarter: 2011Q1

REPORT INFORMATION
  Report Type: 
  Country: None (occurrence: None)
  Receive Date: 20110214
  Receipt Date: 20110214
  Transmission Date: 20110831
  Serious: Yes (Hospitalization, Other)
  Sender: FDA-Public Use
  Company Number: None

PATIENT
  Age: 23 Year
  Sex: Female
  Weight: 80.7403 kg

DRUGS (1)
  1. MIRENA [Suspect]

REACTIONS (18)
  - HEADACHE [None]
  - DEVICE EXPULSION [None]
  - BACK PAIN [None]
  - PHARYNGITIS STREPTOCOCCAL [None]
  - MUSCLE SPASMS [None]
  - ANXIETY [None]
  - NAUSEA [None]
  - CHILLS [None]
  - PARAESTHESIA [None]
  - METRORRHAGIA [None]
  - IMMUNE SYSTEM DISORDER [None]
  - PYREXIA [None]
  - FATIGUE [None]
  - HYPOAESTHESIA [None]
  - FEELING OF BODY TEMPERATURE CHANGE [None]
  - CONFUSIONAL STATE [None]
  - PAIN IN EXTREMITY [None]
  - ILL-DEFINED DISORDER [None]
